FAERS Safety Report 19749364 (Version 1)
Quarter: 2021Q3

REPORT INFORMATION
  Report Type: Spontaneous
  Country: US (occurrence: US)
  Receive Date: 20210824
  Receipt Date: 20210824
  Transmission Date: 20211014
  Serious: No
  Sender: FDA-Public Use
  Company Number: None

PATIENT

DRUGS (2)
  1. EPINEPHRINE. [Suspect]
     Active Substance: EPINEPHRINE
     Route: 042
  2. EPINEPHRINE. [Suspect]
     Active Substance: EPINEPHRINE
     Route: 045

REACTIONS (6)
  - Packaging design issue [None]
  - Transcription medication error [None]
  - Physical product label issue [None]
  - Product label confusion [None]
  - Product label issue [None]
  - Product communication issue [None]
